FAERS Safety Report 8523034-4 (Version None)
Quarter: 2012Q3

REPORT INFORMATION
  Report Type: 
  Country: None (occurrence: None)
  Receive Date: 20120720
  Receipt Date: 20120716
  Transmission Date: 20120928
  Serious: Yes (Hospitalization)
  Sender: FDA-Public Use
  Company Number: CA-ROCHE-1089542

PATIENT
  Sex: Female
  Weight: 72.64 kg

DRUGS (11)
  1. ACTEMRA [Suspect]
     Indication: RHEUMATOID ARTHRITIS
     Route: 042
     Dates: start: 20111123
  2. GABAPENTIN [Concomitant]
  3. NEXIUM [Concomitant]
  4. VITAMIN D [Concomitant]
  5. CELEBREX [Concomitant]
  6. VITALUX [Concomitant]
  7. IMMUNOCAL [Concomitant]
  8. CALCIUM [Concomitant]
  9. SULFASALAZINE [Concomitant]
  10. AVAPRO [Concomitant]
  11. COENZYME Q10 COMPLEX (UNK INGREDIENTS) [Concomitant]

REACTIONS (6)
  - PRESYNCOPE [None]
  - URINARY TRACT INFECTION [None]
  - BRONCHITIS [None]
  - NASOPHARYNGITIS [None]
  - PAIN IN EXTREMITY [None]
  - SPINAL PAIN [None]
